FAERS Safety Report 12632289 (Version 2)
Quarter: 2016Q3

REPORT INFORMATION
  Report Type: Spontaneous
  Country: US (occurrence: US)
  Receive Date: 20160808
  Receipt Date: 20160808
  Transmission Date: 20161109
  Serious: No
  Sender: FDA-Public Use
  Company Number: US-BEH-2016062323

PATIENT
  Sex: Female
  Weight: 126 kg

DRUGS (23)
  1. DIPHENHYDRAMINE. [Concomitant]
     Active Substance: DIPHENHYDRAMINE
  2. CYCLOBENZAPRINE [Concomitant]
     Active Substance: CYCLOBENZAPRINE
  3. ACETAMINOPHEN. [Concomitant]
     Active Substance: ACETAMINOPHEN
  4. DILTIAZEM. [Concomitant]
     Active Substance: DILTIAZEM
  5. ASPIRIN EC [Concomitant]
     Active Substance: ASPIRIN
  6. FISH OIL [Concomitant]
     Active Substance: FISH OIL
  7. METOPROLOL. [Concomitant]
     Active Substance: METOPROLOL
  8. L-M-X [Concomitant]
  9. LOSARTAN. [Concomitant]
     Active Substance: LOSARTAN
  10. POTASSIUM [Concomitant]
     Active Substance: POTASSIUM
  11. VITAMIN D [Concomitant]
     Active Substance: CHOLECALCIFEROL
  12. LYRICA [Concomitant]
     Active Substance: PREGABALIN
  13. HIZENTRA [Suspect]
     Active Substance: HUMAN IMMUNOGLOBULIN G
     Indication: IMMUNODEFICIENCY COMMON VARIABLE
     Route: 058
  14. METHOTREXATE. [Concomitant]
     Active Substance: METHOTREXATE
  15. CENTRUM SILVER [Concomitant]
     Active Substance: MINERALS\VITAMINS
  16. TRIAMCINOLONE ACETONIDE. [Concomitant]
     Active Substance: TRIAMCINOLONE ACETONIDE
  17. LIPITOR [Concomitant]
     Active Substance: ATORVASTATIN CALCIUM
  18. FUROSEMIDE. [Concomitant]
     Active Substance: FUROSEMIDE
  19. FOLIC ACID. [Concomitant]
     Active Substance: FOLIC ACID
  20. EPIPEN [Concomitant]
     Active Substance: EPINEPHRINE
  21. LEXAPRO [Concomitant]
     Active Substance: ESCITALOPRAM OXALATE
  22. LEVOTHYROXINE. [Concomitant]
     Active Substance: LEVOTHYROXINE
  23. METFORMIN [Concomitant]
     Active Substance: METFORMIN HYDROCHLORIDE

REACTIONS (1)
  - Bronchitis [Unknown]
